FAERS Safety Report 7725351-4 (Version None)
Quarter: 2011Q3

REPORT INFORMATION
  Report Type: 
  Country: None (occurrence: None)
  Receive Date: 20110830
  Receipt Date: 20110808
  Transmission Date: 20111222
  Serious: Yes (Death)
  Sender: FDA-Public Use
  Company Number: JPI-P-002951

PATIENT
  Age: 36 Year
  Sex: Male

DRUGS (3)
  1. UNSPECIFIED DRUG [Suspect]
     Indication: PRODUCT USED FOR UNKNOWN INDICATION
  2. UNSPECIFIED ANTIDEPRESSANT [Concomitant]
  3. XYREM [Suspect]
     Indication: NARCOLEPSY
     Dosage: ORAL
     Route: 048

REACTIONS (1)
  - OVERDOSE [None]
